FAERS Safety Report 13840167 (Version 1)
Quarter: 2017Q3

REPORT INFORMATION
  Report Type: Spontaneous
  Country: US (occurrence: US)
  Receive Date: 20170807
  Receipt Date: 20170807
  Transmission Date: 20171127
  Serious: Yes (Other)
  Sender: FDA-Public Use
  Company Number: None

PATIENT
  Age: 74 Year
  Sex: Female
  Weight: 52.2 kg

DRUGS (10)
  1. VITAMIN B12 [Concomitant]
     Active Substance: CYANOCOBALAMIN
  2. VITAMIN D [Concomitant]
     Active Substance: CHOLECALCIFEROL
  3. SIMVASTATIN. [Concomitant]
     Active Substance: SIMVASTATIN
  4. COQ10 [Concomitant]
     Active Substance: UBIDECARENONE
  5. ACETYL-L-CARNITINE [Concomitant]
  6. RID [Suspect]
     Active Substance: PIPERONYL BUTOXIDE\PYRETHRUM EXTRACT
     Indication: LICE INFESTATION
     Dosage: 2 TUBE; AS NEEDED; TOPICAL ?
     Route: 061
     Dates: start: 20170215, end: 20170222
  7. MAGNESIUM [Concomitant]
     Active Substance: MAGNESIUM
  8. CRANBERRY. [Concomitant]
     Active Substance: CRANBERRY
  9. MELATONIN [Concomitant]
     Active Substance: MELATONIN
  10. FISH OIL [Concomitant]
     Active Substance: FISH OIL

REACTIONS (4)
  - Application site burn [None]
  - Application site pain [None]
  - Dermatitis [None]
  - Pruritus [None]

NARRATIVE: CASE EVENT DATE: 20170215
